FAERS Safety Report 4476105-6 (Version None)
Quarter: 2004Q3

REPORT INFORMATION
  Report Type: 
  Country: None (occurrence: None)
  Receive Date: 20040923
  Receipt Date: 20040702
  Transmission Date: 20050211
  Serious: No
  Sender: FDA-Public Use
  Company Number: USA040670847

PATIENT
  Age: 68 Year
  Sex: Female
  Weight: 63 kg

DRUGS (6)
  1. FORTEO [Suspect]
     Indication: OSTEOPOROSIS
     Dosage: 20 UG/1 DAY
     Dates: start: 20040505
  2. RALOXIFENE HCL [Suspect]
     Indication: OSTEOPOROSIS
     Dates: start: 20030201, end: 20040504
  3. ULTRACET [Concomitant]
  4. PREVACID [Concomitant]
  5. CALTRATE + D [Concomitant]
  6. MULTIVITAMIN [Concomitant]

REACTIONS (5)
  - BACK PAIN [None]
  - BONE DENSITY DECREASED [None]
  - RASH PRURITIC [None]
  - SKIN NODULE [None]
  - SPINAL FRACTURE [None]
